FAERS Safety Report 17259156 (Version 1)
Quarter: 2020Q1

REPORT INFORMATION
  Report Type: Not Available
  Country: US (occurrence: US)
  Receive Date: 20200110
  Receipt Date: 20200110
  Transmission Date: 20200409
  Serious: Yes (Hospitalization)
  Sender: FDA-Public Use
  Company Number: US-NEUROCRINE BIOSCIENCES INC.-2020NBI00016

PATIENT
  Sex: Male

DRUGS (8)
  1. ZOLOFT [Concomitant]
     Active Substance: SERTRALINE HYDROCHLORIDE
  2. ASPIRIN. [Concomitant]
     Active Substance: ASPIRIN
  3. ALEVE [Concomitant]
     Active Substance: NAPROXEN SODIUM
  4. XANAX [Concomitant]
     Active Substance: ALPRAZOLAM
  5. PROPRANOLOL [Concomitant]
     Active Substance: PROPRANOLOL HYDROCHLORIDE
  6. OMEPRAZOLE. [Concomitant]
     Active Substance: OMEPRAZOLE
  7. INGREZZA [Suspect]
     Active Substance: VALBENAZINE
     Indication: TARDIVE DYSKINESIA
     Dosage: TAKE AT BEDTIME
     Route: 048
  8. REXULTI [Concomitant]
     Active Substance: BREXPIPRAZOLE

REACTIONS (2)
  - Urticaria [Unknown]
  - Angioedema [Unknown]
